FAERS Safety Report 15465126 (Version 1)
Quarter: 2018Q4

REPORT INFORMATION
  Report Type: Spontaneous
  Country: IT (occurrence: IT)
  Receive Date: 20181004
  Receipt Date: 20181004
  Transmission Date: 20190204
  Serious: Yes (Hospitalization, Other)
  Sender: FDA-Public Use
  Company Number: IT-JAZZ-2018-IT-003482

PATIENT
  Age: 13 Year
  Sex: Female
  Weight: 155 kg

DRUGS (3)
  1. DAUNORUBICIN [Concomitant]
     Active Substance: DAUNORUBICIN
     Indication: PROPHYLAXIS
     Dosage: 30 MG, UNK
     Route: 042
     Dates: start: 20170418, end: 20170515
  2. ASPARAGINASE [Suspect]
     Active Substance: ASPARAGINASE
     Indication: ACUTE LYMPHOCYTIC LEUKAEMIA
     Dosage: 10000 KIU, 1 CYCLE
     Route: 042
     Dates: start: 20170422, end: 20170504
  3. VINCRISTINE [Concomitant]
     Active Substance: VINCRISTINE
     Indication: PROPHYLAXIS
     Dosage: 1.5 MG, UNK
     Route: 042
     Dates: start: 20170418, end: 20170515

REACTIONS (2)
  - Pulmonary embolism [Recovering/Resolving]
  - Venous thrombosis limb [Recovering/Resolving]

NARRATIVE: CASE EVENT DATE: 20170507
